FAERS Safety Report 5406600-4 (Version None)
Quarter: 2007Q3

REPORT INFORMATION
  Report Type: 
  Country: None (occurrence: None)
  Receive Date: 20070806
  Receipt Date: 20070725
  Transmission Date: 20080115
  Serious: Yes (Other)
  Sender: FDA-Public Use
  Company Number: US-PFIZER INC-2007062067

PATIENT
  Sex: Male
  Weight: 90.909 kg

DRUGS (1)
  1. CEREBYX [Suspect]
     Route: 042
     Dates: start: 20070711, end: 20070713

REACTIONS (1)
  - PURPLE GLOVE SYNDROME [None]
